FAERS Safety Report 8475932-8 (Version None)
Quarter: 2012Q2

REPORT INFORMATION
  Report Type: 
  Country: None (occurrence: None)
  Receive Date: 20120621
  Receipt Date: 20120611
  Transmission Date: 20120825
  Serious: Yes (Hospitalization)
  Sender: FDA-Public Use
  Company Number: 2011SP050079

PATIENT
  Age: 34 Year
  Sex: Female
  Weight: 75 kg

DRUGS (3)
  1. NEXPLANON [Suspect]
     Indication: PRODUCT USED FOR UNKNOWN INDICATION
     Dosage: 1 DF
     Dates: start: 20110121
  2. MIRENA [Concomitant]
  3. ORAL CONTRACEPTIVE NOS [Concomitant]

REACTIONS (7)
  - PREGNANCY WITH CONTRACEPTIVE DEVICE [None]
  - MENTAL DISORDER [None]
  - METRORRHAGIA [None]
  - ABORTION INDUCED [None]
  - PRODUCT QUALITY ISSUE [None]
  - DRUG INEFFECTIVE [None]
  - INJURY [None]
